FAERS Safety Report 10182461 (Version 1)
Quarter: 2014Q2

REPORT INFORMATION
  Report Type: Spontaneous
  Country: GB (occurrence: GB)
  Receive Date: 20140520
  Receipt Date: 20140520
  Transmission Date: 20141212
  Serious: Yes (Hospitalization)
  Sender: FDA-Public Use
  Company Number: GB-PERRIGO-14GB005043

PATIENT
  Age: 2 Year
  Sex: Female
  Weight: 14 kg

DRUGS (2)
  1. IBUPROFEN 20 MG/ML 16028/0034 [Suspect]
     Indication: VIRAL UPPER RESPIRATORY TRACT INFECTION
     Dosage: 500 MG, TID
     Route: 048
  2. DICLOFENAC                         /00372303/ [Concomitant]
     Indication: VIRAL UPPER RESPIRATORY TRACT INFECTION
     Dosage: 50 MG, SINGLE
     Route: 054

REACTIONS (3)
  - Large intestine perforation [Recovered/Resolved]
  - Accidental overdose [Unknown]
  - Constipation [Recovered/Resolved]
